FAERS Safety Report 10089792 (Version 2)
Quarter: 2014Q2

REPORT INFORMATION
  Report Type: Spontaneous
  Country: PH (occurrence: PH)
  Receive Date: 20140421
  Receipt Date: 20140422
  Transmission Date: 20141212
  Serious: Yes (Life-Threatening, Hospitalization)
  Sender: FDA-Public Use
  Company Number: PH-B.I. PHARMACEUTICALS,INC./RIDGEFIELD-2014-BI-17479RP

PATIENT
  Age: 80 Year
  Sex: Male

DRUGS (1)
  1. TRAJENTA [Suspect]
     Indication: DIABETES MELLITUS
     Dosage: 5 MG
     Route: 048
     Dates: start: 201303, end: 201403

REACTIONS (3)
  - Pancreatic carcinoma [Not Recovered/Not Resolved]
  - Pancreatitis [Recovered/Resolved]
  - Jaundice cholestatic [Recovered/Resolved]
